FAERS Safety Report 6255077-8 (Version None)
Quarter: 2009Q3

REPORT INFORMATION
  Report Type: 
  Country: None (occurrence: None)
  Receive Date: 20090702
  Receipt Date: 20090626
  Transmission Date: 20100115
  Serious: Yes (Other)
  Sender: FDA-Public Use
  Company Number: US-GENENTECH-285784

PATIENT
  Age: 34 Year
  Sex: Female

DRUGS (1)
  1. AVASTIN [Suspect]
     Indication: MALIGNANT GLIOMA
     Dosage: UNK

REACTIONS (1)
  - HEMIPARESIS [None]
